FAERS Safety Report 9785186 (Version 2)
Quarter: 2014Q1

REPORT INFORMATION
  Report Type: Spontaneous
  Country: JP (occurrence: JP)
  Receive Date: 20131227
  Receipt Date: 20140312
  Transmission Date: 20141002
  Serious: Yes (Disabling, Congenital Anomaly)
  Sender: FDA-Public Use
  Company Number: JP-ROCHE-1322636

PATIENT
  Age: 0 Day
  Sex: Female
  Weight: 3.12 kg

DRUGS (1)
  1. TAMIFLU [Suspect]
     Indication: INFLUENZA
     Route: 064
     Dates: start: 20110310, end: 20110310

REACTIONS (2)
  - Cleft lip and palate [Recovered/Resolved with Sequelae]
  - Foetal exposure during pregnancy [Unknown]
